FAERS Safety Report 8448692-4 (Version None)
Quarter: 2012Q2

REPORT INFORMATION
  Report Type: 
  Country: None (occurrence: None)
  Receive Date: 20120619
  Receipt Date: 20120608
  Transmission Date: 20120825
  Serious: Yes (Hospitalization)
  Sender: FDA-Public Use
  Company Number: HK-PERRIGO-12HK005149

PATIENT
  Age: 32 Year
  Sex: Male

DRUGS (7)
  1. DEXTROMETHORPHAN HYDROBROMIDE [Suspect]
     Indication: PRODUCT USED FOR UNKNOWN INDICATION
     Dosage: UNK, UNK
     Route: 065
  2. ALCOHOL [Suspect]
     Indication: PRODUCT USED FOR UNKNOWN INDICATION
     Dosage: UNK, UNK
     Route: 048
  3. KETAMINE HCL [Suspect]
     Indication: PRODUCT USED FOR UNKNOWN INDICATION
     Dosage: UNK, UNK
     Route: 065
  4. COUGH AND COLD PREPARATIONS [Suspect]
     Indication: PRODUCT USED FOR UNKNOWN INDICATION
     Dosage: 30 PER DAY
     Route: 048
  5. MIDAZOLAM HCL RX 2 MG/ML 7H8 [Suspect]
     Indication: PRODUCT USED FOR UNKNOWN INDICATION
     Dosage: UNK, UNK
     Route: 065
  6. MODECATE [Concomitant]
     Indication: SCHIZOPHRENIA
     Dosage: 25 MG, MONTHLY
     Route: 030
  7. BENZODIAZEPINE DERIVATIVES [Suspect]
     Indication: PRODUCT USED FOR UNKNOWN INDICATION
     Dosage: UNK, UNK
     Route: 065

REACTIONS (7)
  - LEUKOCYTOSIS [None]
  - BLOOD CREATINE PHOSPHOKINASE INCREASED [None]
  - CONFUSIONAL STATE [None]
  - COORDINATION ABNORMAL [None]
  - RHABDOMYOLYSIS [None]
  - SUBSTANCE ABUSE [None]
  - BLOOD FOLATE DECREASED [None]
